FAERS Safety Report 4292975-9 (Version None)
Quarter: 2004Q1

REPORT INFORMATION
  Report Type: 
  Country: None (occurrence: None)
  Receive Date: 20040212
  Receipt Date: 20030806
  Transmission Date: 20041129
  Serious: No
  Sender: FDA-Public Use
  Company Number: US-GLAXOSMITHKLINE-A0419775A

PATIENT
  Age: 35 Year
  Sex: Female

DRUGS (1)
  1. PAXIL [Suspect]
     Indication: OBSESSIVE-COMPULSIVE DISORDER
     Dosage: 40MG PER DAY
     Route: 048
     Dates: start: 19990101

REACTIONS (3)
  - ABNORMAL DREAMS [None]
  - HEADACHE [None]
  - WEIGHT INCREASED [None]
